FAERS Safety Report 17338298 (Version 3)
Quarter: 2020Q2

REPORT INFORMATION
  Report Type: Report from Study
  Country: EG (occurrence: EG)
  Receive Date: 20200129
  Receipt Date: 20200415
  Transmission Date: 20200713
  Serious: Yes (Other)
  Sender: FDA-Public Use
  Company Number: NVSC2020EG017455

PATIENT
  Age: 7 Year
  Sex: Female

DRUGS (5)
  1. PRAVOTIN [Concomitant]
     Indication: PRODUCT USED FOR UNKNOWN INDICATION
     Dosage: 1 SACHET, QD
     Route: 065
  2. PEDIASURE [Concomitant]
     Active Substance: VITAMINS
     Indication: PRODUCT USED FOR UNKNOWN INDICATION
     Dosage: MILK
     Route: 065
  3. OMNITROPE [Suspect]
     Active Substance: SOMATROPIN
     Indication: GROWTH HORMONE DEFICIENCY
     Dosage: 0.7 MG, QD
     Route: 058
     Dates: start: 201811
  4. ZINC. [Concomitant]
     Active Substance: ZINC
     Indication: PRODUCT USED FOR UNKNOWN INDICATION
     Dosage: 15 CM, QD
     Route: 065
  5. VIDROP [Concomitant]
     Indication: PRODUCT USED FOR UNKNOWN INDICATION
     Dosage: 15 DROPS, QD
     Route: 065

REACTIONS (10)
  - Injection site warmth [Not Recovered/Not Resolved]
  - Injection site swelling [Not Recovered/Not Resolved]
  - Helicobacter infection [Recovered/Resolved]
  - Device issue [Not Recovered/Not Resolved]
  - Product dose omission [Recovered/Resolved]
  - Abdominal pain upper [Not Recovered/Not Resolved]
  - Flatulence [Not Recovered/Not Resolved]
  - Product dose omission [Not Recovered/Not Resolved]
  - Dark circles under eyes [Not Recovered/Not Resolved]
  - Injection site pain [Not Recovered/Not Resolved]

NARRATIVE: CASE EVENT DATE: 201906
